FAERS Safety Report 11643271 (Version 1)
Quarter: 2015Q4

REPORT INFORMATION
  Report Type: Spontaneous
  Country: US (occurrence: US)
  Receive Date: 20151020
  Receipt Date: 20151020
  Transmission Date: 20160304
  Serious: Yes (Other)
  Sender: FDA-Public Use
  Company Number: US-ASTRAZENECA-2015SE99224

PATIENT
  Age: 44 Year
  Sex: Female
  Weight: 63.5 kg

DRUGS (10)
  1. VICODIN [Suspect]
     Active Substance: ACETAMINOPHEN\HYDROCODONE BITARTRATE
     Indication: PAIN
     Dosage: 5/325MG AS NEEDED
     Route: 065
     Dates: start: 20151004
  2. CYMBALTA [Suspect]
     Active Substance: DULOXETINE HYDROCHLORIDE
     Indication: PAIN
     Dosage: 30 MG DAILY, ELI LILLY AND COMPANY
     Route: 048
  3. XANAX [Concomitant]
     Active Substance: ALPRAZOLAM
     Indication: ANXIETY
  4. XANAX [Concomitant]
     Active Substance: ALPRAZOLAM
     Indication: PREMENSTRUAL SYNDROME
  5. PRISTIQ EXTENDED RELEASE [Suspect]
     Active Substance: DESVENLAFAXINE SUCCINATE
     Indication: DEPRESSION
     Dosage: PFIZER 50MG DAILY
     Route: 048
     Dates: start: 20151003, end: 20151003
  6. IBUPROFEN. [Concomitant]
     Active Substance: IBUPROFEN
     Indication: PAIN
     Dosage: 600MG EVERY 6 HOURS AS NEEDED
  7. SEROQUEL [Suspect]
     Active Substance: QUETIAPINE FUMARATE
     Indication: SLEEP DISORDER
     Route: 048
  8. CELEXA [Suspect]
     Active Substance: CITALOPRAM HYDROBROMIDE
     Dosage: WHATEVER THE LOWEST POSSIBLE DOSE AVAILABLE, SHE CUT THAT IN HALF AND THAT WAS WHAT SHE WAS TAKING
     Route: 065
  9. ZANTAC [Concomitant]
     Active Substance: RANITIDINE HYDROCHLORIDE
     Indication: GASTROOESOPHAGEAL REFLUX DISEASE
  10. MULTIVITAMIN [Concomitant]
     Active Substance: VITAMINS
     Dosage: ONCE A DAY

REACTIONS (17)
  - Somnolence [Recovered/Resolved]
  - Depression [Not Recovered/Not Resolved]
  - Headache [Recovered/Resolved]
  - Abdominal pain upper [Recovered/Resolved]
  - Skin tightness [Unknown]
  - Gastric ulcer [Recovered/Resolved]
  - Nausea [Recovered/Resolved]
  - Hypophagia [Recovered/Resolved]
  - Dizziness [Recovered/Resolved]
  - Road traffic accident [Unknown]
  - Endometriosis [Not Recovered/Not Resolved]
  - Adverse event [Unknown]
  - Anxiety [Not Recovered/Not Resolved]
  - Product use issue [Unknown]
  - Abdominal discomfort [Recovered/Resolved]
  - Muscle tightness [Unknown]
  - Dyskinesia [Unknown]

NARRATIVE: CASE EVENT DATE: 201409
